FAERS Safety Report 8578587-7 (Version None)
Quarter: 2012Q3

REPORT INFORMATION
  Report Type: 
  Country: None (occurrence: None)
  Receive Date: 20120726
  Receipt Date: 20120625
  Transmission Date: 20120928
  Serious: Yes (Other)
  Sender: FDA-Public Use
  Company Number: 1329787

PATIENT
  Age: 23 Year
  Sex: Female

DRUGS (2)
  1. MAGNESIUM SULFATE [Suspect]
     Indication: PRE-ECLAMPSIA
     Dosage: 4 G, INTRAVENOUS DRIP 2 G/HR
     Route: 041
     Dates: start: 20120623, end: 20120624
  2. MAGNESIUM SULFATE [Suspect]
     Indication: PRE-ECLAMPSIA
     Dosage: 4 G, INTRAVENOUS DRIP 2 G/HR
     Route: 041
     Dates: start: 20120623

REACTIONS (2)
  - MATERNAL EXPOSURE DURING PREGNANCY [None]
  - FOETAL DEATH [None]
